FAERS Safety Report 8235370-X (Version None)
Quarter: 2012Q1

REPORT INFORMATION
  Report Type: 
  Country: None (occurrence: None)
  Receive Date: 20120326
  Receipt Date: 20120323
  Transmission Date: 20120608
  Serious: Yes (Other)
  Sender: FDA-Public Use
  Company Number: JP-PFIZER INC-2012023656

PATIENT
  Age: 33 Year
  Sex: Male
  Weight: 70 kg

DRUGS (6)
  1. GASMOTIN [Concomitant]
     Indication: NAUSEA
     Dosage: 5 MG, 3X/DAY
     Route: 048
     Dates: start: 20111220, end: 20120209
  2. VARENICLINE TARTRATE [Suspect]
     Indication: NICOTINE DEPENDENCE
     Dosage: 0.5 MG DAILY
     Route: 048
     Dates: start: 20111208, end: 20111210
  3. VARENICLINE TARTRATE [Suspect]
     Dosage: 1 MG DAILY
     Route: 048
     Dates: start: 20111211, end: 20111214
  4. VARENICLINE TARTRATE [Suspect]
     Dosage: 2 MG DAILY
     Route: 048
     Dates: start: 20111215, end: 20120308
  5. AMOBAN [Concomitant]
     Indication: INSOMNIA
     Dosage: 10 MG, 1X/DAY
     Route: 048
     Dates: start: 20110126
  6. ZOLPIDEM [Concomitant]
     Indication: INSOMNIA
     Dosage: 10 MG, 1X/DAY
     Route: 048
     Dates: start: 20110126

REACTIONS (2)
  - LOSS OF CONSCIOUSNESS [None]
  - FALL [None]
